FAERS Safety Report 19157293 (Version 13)
Quarter: 2021Q3

REPORT INFORMATION
  Report Type: Report from Study
  Country: KR (occurrence: KR)
  Receive Date: 20210420
  Receipt Date: 20210901
  Transmission Date: 20211014
  Serious: Yes (Death, Hospitalization)
  Sender: FDA-Public Use
  Company Number: KR-EISAI MEDICAL RESEARCH-EC-2021-091426

PATIENT
  Age: 61 Year
  Sex: Female
  Weight: 48 kg

DRUGS (15)
  1. LENVATINIB [Suspect]
     Active Substance: LENVATINIB
     Route: 048
     Dates: start: 20210419
  2. TANTUM [BENZYDAMINE HYDROCHLORIDE] [Concomitant]
     Dates: start: 20210302
  3. MUTERAN [Concomitant]
     Active Substance: ACETYLCYSTEINE
     Route: 042
     Dates: start: 20210411, end: 20210411
  4. PEMBROLIZUMAB. [Suspect]
     Active Substance: PEMBROLIZUMAB
     Indication: GASTRIC CANCER
     Route: 041
     Dates: start: 20210402, end: 20210402
  5. SODIUM BICARBONATE. [Concomitant]
     Active Substance: SODIUM BICARBONATE
     Dates: start: 20210402
  6. FEROBA U [Concomitant]
     Active Substance: FERROUS SULFATE
     Dates: start: 20210305
  7. GANAKHAN [Concomitant]
     Dates: start: 20210401
  8. LAMINA?G [Concomitant]
     Dates: start: 20210304
  9. PANTOLOC [Concomitant]
     Active Substance: PANTOPRAZOLE SODIUM
     Dates: start: 20210305
  10. PEMBROLIZUMAB. [Suspect]
     Active Substance: PEMBROLIZUMAB
     Route: 041
     Dates: start: 20210421
  11. IRCODON [Concomitant]
     Active Substance: OXYCODONE HYDROCHLORIDE
     Dates: start: 20210312
  12. TRESTAN [CARNITINE HYDROCHLORIDE;CYANOCOBALAMIN;CYPROHEPTADINE OROTATE [Concomitant]
     Dates: start: 20210401
  13. MACPERAN [Concomitant]
     Active Substance: METOCLOPRAMIDE HYDROCHLORIDE
     Route: 042
     Dates: start: 20210411, end: 20210411
  14. LENVATINIB [Suspect]
     Active Substance: LENVATINIB
     Indication: GASTRIC CANCER
     Route: 048
     Dates: start: 20210402, end: 20210409
  15. MEGACE F [Concomitant]
     Dates: start: 20210127

REACTIONS (1)
  - Aphasia [Recovering/Resolving]

NARRATIVE: CASE EVENT DATE: 20210411
